FAERS Safety Report 5007555-7 (Version None)
Quarter: 2006Q2

REPORT INFORMATION
  Report Type: 
  Country: None (occurrence: None)
  Receive Date: 20060522
  Receipt Date: 20060510
  Transmission Date: 20061013
  Serious: Yes (Other)
  Sender: FDA-Public Use
  Company Number: JP-JNJFOC-20050802699

PATIENT
  Sex: Female
  Weight: 55 kg

DRUGS (35)
  1. REMICADE [Suspect]
     Route: 042
  2. REMICADE [Suspect]
     Route: 042
  3. REMICADE [Suspect]
     Route: 042
  4. REMICADE [Suspect]
     Route: 042
  5. REMICADE [Suspect]
     Route: 042
  6. REMICADE [Suspect]
     Route: 042
  7. REMICADE [Suspect]
     Route: 042
  8. REMICADE [Suspect]
     Route: 042
  9. REMICADE [Suspect]
     Indication: RHEUMATOID ARTHRITIS
     Route: 042
  10. RHEUMATREX [Suspect]
     Route: 048
  11. RHEUMATREX [Suspect]
     Route: 048
  12. RHEUMATREX [Suspect]
     Route: 048
  13. RHEUMATREX [Suspect]
     Route: 048
  14. RHEUMATREX [Suspect]
     Indication: RHEUMATOID ARTHRITIS
     Route: 048
  15. GASTER D [Concomitant]
     Route: 048
  16. PREDNISOLONE [Concomitant]
     Route: 048
  17. PREDNISOLONE [Concomitant]
     Route: 048
  18. PREDNISOLONE [Concomitant]
     Route: 048
  19. PREDNISOLONE [Concomitant]
     Route: 048
  20. PREDNISOLONE [Concomitant]
     Route: 048
  21. PREDNISOLONE [Concomitant]
     Route: 048
  22. PREDNISOLONE [Concomitant]
     Route: 048
  23. PREDNISOLONE [Concomitant]
     Indication: RHEUMATOID ARTHRITIS
     Route: 048
  24. LORCAM [Concomitant]
     Indication: RHEUMATOID ARTHRITIS
     Route: 048
  25. YAKUBAN [Concomitant]
     Indication: RHEUMATOID ARTHRITIS
     Route: 048
  26. TAKEPRON [Concomitant]
     Route: 048
  27. ADRENAL HORMONE PREPARATIONS [Concomitant]
     Indication: RHEUMATOID ARTHRITIS
  28. ORCL [Concomitant]
     Indication: RHEUMATOID ARTHRITIS
     Route: 048
  29. AZULFIDINE [Concomitant]
     Indication: RHEUMATOID ARTHRITIS
     Route: 048
  30. SHIOSOL [Concomitant]
     Indication: RHEUMATOID ARTHRITIS
     Route: 030
  31. VOLTAREN [Concomitant]
     Indication: RHEUMATOID ARTHRITIS
     Route: 048
  32. MS ONSHIPPU [Concomitant]
     Indication: RHEUMATOID ARTHRITIS
     Route: 047
  33. OMEPRAL [Concomitant]
     Route: 048
  34. BENET [Concomitant]
     Route: 048
  35. LOXONIN [Concomitant]

REACTIONS (3)
  - ARTHROPOD STING [None]
  - CYTOMEGALOVIRUS INFECTION [None]
  - OEDEMA PERIPHERAL [None]
